FAERS Safety Report 8236764-9 (Version None)
Quarter: 2012Q1

REPORT INFORMATION
  Report Type: 
  Country: None (occurrence: None)
  Receive Date: 20120309
  Receipt Date: 20110119
  Transmission Date: 20120608
  Serious: Yes (Other)
  Sender: FDA-Public Use
  Company Number: PHHY2010US45115

PATIENT
  Sex: Female

DRUGS (8)
  1. DIURETICS (NO INGREDIENTS/SUBSTANCES) [Concomitant]
  2. EXTAVIA [Suspect]
     Indication: MULTIPLE SCLEROSIS
     Dosage: 0.25 MG, QOD, SUBCUTANEOUS
     Route: 058
     Dates: start: 20100320
  3. ANTIHYPERTENSIVES (NO INGREDIENTS/SUBSTANCES) [Concomitant]
  4. ASPIRIN [Concomitant]
  5. SYNTHROID [Concomitant]
  6. IBUPROFEN [Concomitant]
  7. ALPRAZOLAM [Concomitant]
  8. VITAMIN D (ERGOCALCIFEROL) CAPSULE [Concomitant]

REACTIONS (4)
  - OEDEMA PERIPHERAL [None]
  - HYPOAESTHESIA [None]
  - GAIT DISTURBANCE [None]
  - MUSCULOSKELETAL STIFFNESS [None]
